FAERS Safety Report 9260345 (Version 1)
Quarter: 2013Q2

REPORT INFORMATION
  Report Type: Spontaneous
  Country: US (occurrence: US)
  Receive Date: 20130429
  Receipt Date: 20130429
  Transmission Date: 20140414
  Serious: Yes (Hospitalization, Other)
  Sender: FDA-Public Use
  Company Number: PHEH2013US009234

PATIENT
  Sex: Female

DRUGS (16)
  1. RECLAST [Suspect]
     Dates: start: 20130226, end: 20130226
  2. B12-VITAMIIN [Concomitant]
     Dosage: UNK UKN, EVERY MONTH
     Route: 058
  3. XANAX [Concomitant]
     Dosage: UNK UKN, TID
  4. NORVASK [Concomitant]
  5. CALCIUM [Concomitant]
     Dosage: 1200 MG, UNK
  6. VITAMIN D [Concomitant]
     Dosage: 1200 U, UNK
  7. DEPAKOTE ER [Concomitant]
     Dosage: 1000 MG, UNK
  8. FENOFIBRATE [Concomitant]
     Dosage: 160 MG, UNK
  9. FERROUS SULFATE [Concomitant]
     Dosage: 325 MG, QD
  10. MUCODEX                            /06417001/ [Concomitant]
     Dosage: 600 MG, Q12H
  11. SYNTHROID [Concomitant]
     Dosage: 50 UG, QD
  12. TOPROL XL [Concomitant]
     Dosage: 50 MG, QD
  13. PRILOSEC [Concomitant]
     Dosage: 20 MG, QD
  14. PREDNISONE [Concomitant]
     Dosage: 10 MG, QD
  15. AMBIEN [Concomitant]
     Dosage: 10 MG, UNK
  16. ADVAIR DISKUS [Concomitant]
     Dosage: 1 DF, Q12H

REACTIONS (10)
  - Loss of consciousness [Unknown]
  - Hallucination [Unknown]
  - Aphasia [Unknown]
  - Incoherent [Unknown]
  - Feeling abnormal [Unknown]
  - Aphagia [Unknown]
  - Influenza like illness [Unknown]
  - Pyrexia [Unknown]
  - Pain [Unknown]
  - Nausea [Unknown]
